FAERS Safety Report 5989120-8 (Version None)
Quarter: 2008Q4

REPORT INFORMATION
  Report Type: 
  Country: None (occurrence: None)
  Receive Date: 20081204
  Receipt Date: 20081128
  Transmission Date: 20090506
  Serious: Yes (Hospitalization)
  Sender: FDA-Public Use
  Company Number: T07-JPN-00831-01

PATIENT
  Age: 87 Year
  Sex: Female
  Weight: 47.4 kg

DRUGS (5)
  1. MEMANTINE HCL [Suspect]
     Indication: DEMENTIA ALZHEIMER'S TYPE
     Dosage: 20 MG (20 MG, 1 IN 1 D), ORAL
     Route: 048
     Dates: start: 20061015, end: 20070208
  2. FERROUS CITRATE [Concomitant]
  3. PYRIDOXAL CALCIUM PHOSPHATE [Concomitant]
  4. REBAMIPIDE (REBAMIPIDE) (REBAMIPIDE) [Concomitant]
  5. SIMVASTATIN [Concomitant]

REACTIONS (10)
  - BLOOD CULTURE POSITIVE [None]
  - BODY TEMPERATURE DECREASED [None]
  - BODY TEMPERATURE INCREASED [None]
  - CHOLECYSTITIS ACUTE [None]
  - DIARRHOEA [None]
  - KLEBSIELLA INFECTION [None]
  - LUNG INFILTRATION [None]
  - NASOPHARYNGITIS [None]
  - TREMOR [None]
  - VOMITING [None]
